FAERS Safety Report 8336796 (Version 2)
Quarter: 2014Q3

REPORT INFORMATION
  Report Type: Spontaneous
  Country: US (occurrence: US)
  Receive Date: 20120113
  Receipt Date: 20140715
  Transmission Date: 20150326
  Serious: Yes (Hospitalization, Other)
  Sender: FDA-Public Use
  Company Number: US-ROCHE-791126

PATIENT
  Age: 22 Year
  Sex: Male
  Weight: 90.8 kg

DRUGS (3)
  1. ACCUTANE [Suspect]
     Active Substance: ISOTRETINOIN
     Route: 065
     Dates: start: 19980324, end: 199808
  2. ACCUTANE [Suspect]
     Active Substance: ISOTRETINOIN
     Indication: ACNE
     Route: 065
     Dates: start: 19950216, end: 199507
  3. TYLENOL [Concomitant]
     Active Substance: ACETAMINOPHEN

REACTIONS (16)
  - Headache [Unknown]
  - Epistaxis [Unknown]
  - Crohn^s disease [Unknown]
  - Dry skin [Unknown]
  - Cyst [Unknown]
  - Arthralgia [Unknown]
  - Small intestinal obstruction [Unknown]
  - Musculoskeletal pain [Unknown]
  - Emotional distress [Unknown]
  - Diverticulitis [Unknown]
  - Dry eye [Unknown]
  - Lip dry [Unknown]
  - Rhinorrhoea [Unknown]
  - Melanocytic naevus [Unknown]
  - Blood triglycerides increased [Unknown]
  - Irritable bowel syndrome [Unknown]

NARRATIVE: CASE EVENT DATE: 19950301
